FAERS Safety Report 5666065-4 (Version None)
Quarter: 2008Q1

REPORT INFORMATION
  Report Type: 
  Country: None (occurrence: None)
  Receive Date: 20080314
  Receipt Date: 20041223
  Transmission Date: 20080703
  Serious: No
  Sender: FDA-Public Use
  Company Number: US-ABBOTT-07P-163-0429774-00

PATIENT
  Sex: Female

DRUGS (2)
  1. HUMIRA [Suspect]
     Indication: DRUG USE FOR UNKNOWN INDICATION
     Dates: end: 20041101
  2. HUMIRA [Suspect]
     Dates: start: 20041101

REACTIONS (4)
  - ASTHENIA [None]
  - PAIN [None]
  - SLUGGISHNESS [None]
  - SWELLING [None]
